FAERS Safety Report 25801031 (Version 2)
Quarter: 2025Q3

REPORT INFORMATION
  Report Type: Spontaneous
  Country: US (occurrence: US)
  Receive Date: 20250915
  Receipt Date: 20250918
  Transmission Date: 20251020
  Serious: Yes (Hospitalization, Other)
  Sender: KARYOPHARM THERAPEUTICS
  Company Number: US-KARYOPHARM-2025KPT100718

PATIENT

DRUGS (12)
  1. SELINEXOR [Suspect]
     Active Substance: SELINEXOR
     Indication: Plasma cell myeloma
     Route: 048
     Dates: start: 202507
  2. AMLODIPINE [Concomitant]
     Active Substance: AMLODIPINE BESYLATE
  3. DEXAMETHASONE [Concomitant]
     Active Substance: DEXAMETHASONE
  4. GLIMEPIRIDE [Concomitant]
     Active Substance: GLIMEPIRIDE
  5. INSULIN LISPRO [Concomitant]
     Active Substance: INSULIN LISPRO
  6. LISINOPRIL [Concomitant]
     Active Substance: LISINOPRIL
  7. OZEMPIC [Concomitant]
     Active Substance: SEMAGLUTIDE
  8. ROSUVASTATIN [Concomitant]
     Active Substance: ROSUVASTATIN
  9. TIMOLOL [Concomitant]
     Active Substance: TIMOLOL
  10. TRESIBA [Concomitant]
     Active Substance: INSULIN DEGLUDEC
  11. VELCADE [Concomitant]
     Active Substance: BORTEZOMIB
  12. XARELTO [Concomitant]
     Active Substance: RIVAROXABAN

REACTIONS (4)
  - Fall [Recovering/Resolving]
  - Loss of consciousness [Unknown]
  - Contusion [Unknown]
  - Asthenia [Unknown]

NARRATIVE: CASE EVENT DATE: 20250101
